FAERS Safety Report 7632996-9 (Version None)
Quarter: 2011Q3

REPORT INFORMATION
  Report Type: 
  Country: None (occurrence: None)
  Receive Date: 20110725
  Receipt Date: 20110713
  Transmission Date: 20111222
  Serious: Yes (Hospitalization, Other)
  Sender: FDA-Public Use
  Company Number: US-ROCHE-752084

PATIENT
  Sex: Female
  Weight: 56.7 kg

DRUGS (4)
  1. PAXIL [Concomitant]
  2. ACCUTANE [Suspect]
     Indication: ACNE
     Route: 065
     Dates: start: 19970401, end: 20010101
  3. EXCEDRIN (MIGRAINE) [Concomitant]
  4. BIRTH CONTROL PILLS [Concomitant]

REACTIONS (7)
  - GASTROINTESTINAL INJURY [None]
  - INTESTINAL HAEMORRHAGE [None]
  - INTESTINAL OBSTRUCTION [None]
  - CROHN'S DISEASE [None]
  - ILEAL ULCER [None]
  - INFLAMMATORY BOWEL DISEASE [None]
  - IRRITABLE BOWEL SYNDROME [None]
